FAERS Safety Report 5483294-3 (Version None)
Quarter: 2007Q4

REPORT INFORMATION
  Report Type: 
  Country: None (occurrence: None)
  Receive Date: 20071012
  Receipt Date: 20071004
  Transmission Date: 20080405
  Serious: Yes (Other)
  Sender: FDA-Public Use
  Company Number: PHBS2007JP13274

PATIENT
  Age: 1 Year
  Sex: Male

DRUGS (3)
  1. ZADITEN [Suspect]
     Route: 048
     Dates: start: 20070501
  2. PERIACTIN [Concomitant]
     Route: 065
  3. MUCODYNE [Concomitant]
     Route: 065

REACTIONS (2)
  - GAZE PALSY [None]
  - LOSS OF CONSCIOUSNESS [None]
